FAERS Safety Report 11445524 (Version 3)
Quarter: 2015Q4

REPORT INFORMATION
  Report Type: Spontaneous
  Country: DE (occurrence: DE)
  Receive Date: 20150902
  Receipt Date: 20151009
  Transmission Date: 20160304
  Serious: Yes (Death)
  Sender: FDA-Public Use
  Company Number: DE-PFIZER INC-2015286043

PATIENT
  Age: 85 Year
  Sex: Male

DRUGS (3)
  1. TORISEL [Suspect]
     Active Substance: TEMSIROLIMUS
     Indication: MANTLE CELL LYMPHOMA
     Dosage: 75 MG, SINGLE
     Dates: start: 20140305
  2. TORISEL [Suspect]
     Active Substance: TEMSIROLIMUS
     Dosage: 75 MG, SINGLE
     Route: 042
     Dates: start: 20140319
  3. TORISEL [Suspect]
     Active Substance: TEMSIROLIMUS
     Dosage: 75 MG, SINGLE
     Route: 042
     Dates: start: 20140326

REACTIONS (2)
  - Pneumonia [Fatal]
  - Septic shock [Fatal]
